FAERS Safety Report 6412714-2 (Version None)
Quarter: 2009Q4

REPORT INFORMATION
  Report Type: 
  Country: None (occurrence: None)
  Receive Date: 20091023
  Receipt Date: 20091016
  Transmission Date: 20100525
  Serious: Yes (Death, Other)
  Sender: FDA-Public Use
  Company Number: US-PURDUE-USA-2009-0038706

PATIENT
  Age: 38 Year
  Sex: Female

DRUGS (6)
  1. OXYCONTIN [Suspect]
     Indication: DRUG USE FOR UNKNOWN INDICATION
     Dosage: UNK TABLET, UNK
  2. COCAINE [Suspect]
     Indication: DRUG ABUSE
  3. CITALOPRAM HYDROBROMIDE [Suspect]
     Indication: DRUG USE FOR UNKNOWN INDICATION
  4. TRAZODONE [Suspect]
     Indication: DRUG USE FOR UNKNOWN INDICATION
  5. ESTAZOLAM [Suspect]
     Indication: DRUG USE FOR UNKNOWN INDICATION
  6. CANNABIS [Suspect]
     Indication: DRUG ABUSE

REACTIONS (3)
  - ASPHYXIA [None]
  - RESPIRATORY ARREST [None]
  - SUBSTANCE ABUSE [None]
